FAERS Safety Report 7021657-5 (Version None)
Quarter: 2010Q3

REPORT INFORMATION
  Report Type: 
  Country: None (occurrence: None)
  Receive Date: 20100928
  Receipt Date: 20100916
  Transmission Date: 20110219
  Serious: Yes (Hospitalization)
  Sender: FDA-Public Use
  Company Number: 1000016387

PATIENT
  Age: 89 Year
  Sex: Female

DRUGS (5)
  1. CITALOPRAM HYDROBROMIDE [Suspect]
     Dosage: 20 MG (20 MG,1 IN 1 D), ORAL
     Route: 048
     Dates: start: 20100501, end: 20100823
  2. AMLODIPINE BESYLATE [Concomitant]
  3. PLAVIX (CLOPIDOGREL) (CLOPIDOGREL) [Concomitant]
  4. SERESTA (OXAZEPAM) (OXAZEPAM) [Concomitant]
  5. IMOVANE (ZOPICLONE) (ZOPICLONE) [Concomitant]

REACTIONS (3)
  - GENERAL PHYSICAL HEALTH DETERIORATION [None]
  - HYPONATRAEMIA [None]
  - NAUSEA [None]
